FAERS Safety Report 8112455-X (Version None)
Quarter: 2012Q1

REPORT INFORMATION
  Report Type: 
  Country: None (occurrence: None)
  Receive Date: 20120203
  Receipt Date: 20120201
  Transmission Date: 20120608
  Serious: Yes (Hospitalization, Disabling, Other)
  Sender: FDA-Public Use
  Company Number: GB-PFIZER INC-2011256499

PATIENT
  Age: 54 Year
  Sex: Male

DRUGS (1)
  1. VARENICLINE TARTRATE [Suspect]
     Indication: SMOKING CESSATION THERAPY
     Dosage: UNK
     Route: 048
     Dates: start: 20110223, end: 20110307

REACTIONS (10)
  - LOSS OF EMPLOYMENT [None]
  - HALLUCINATION [None]
  - PERSONALITY CHANGE [None]
  - ABNORMAL BEHAVIOUR [None]
  - VITAMIN D ABNORMAL [None]
  - DISINHIBITION [None]
  - DYSKINESIA [None]
  - ATAXIA [None]
  - COGNITIVE DISORDER [None]
  - AFFECT LABILITY [None]
